FAERS Safety Report 5266237-7 (Version None)
Quarter: 2007Q1

REPORT INFORMATION
  Report Type: 
  Country: None (occurrence: None)
  Receive Date: 20070315
  Receipt Date: 20070309
  Transmission Date: 20070707
  Serious: Yes (Other)
  Sender: FDA-Public Use
  Company Number: JP-JPN-A200700941

PATIENT
  Age: 96 Year
  Sex: Female

DRUGS (7)
  1. ZOVIRAX [Suspect]
     Indication: HERPES ZOSTER
     Dosage: 800MG THREE TIMES PER DAY
     Route: 048
     Dates: start: 20070301, end: 20070305
  2. KALLIANT [Concomitant]
     Route: 048
  3. NORVASC [Concomitant]
     Route: 048
  4. NICORANDIL [Concomitant]
     Route: 048
  5. MAGNESIUM OXIDE [Concomitant]
     Route: 048
  6. VIDARABINE [Concomitant]
     Route: 061
  7. ZOVIRAX [Concomitant]
     Route: 031

REACTIONS (4)
  - CONFUSIONAL STATE [None]
  - HALLUCINATION [None]
  - HALLUCINATION, VISUAL [None]
  - INSOMNIA [None]
